FAERS Safety Report 11866422 (Version 1)
Quarter: 2015Q4

REPORT INFORMATION
  Report Type: Spontaneous
  Country: US (occurrence: US)
  Receive Date: 20151224
  Receipt Date: 20151224
  Transmission Date: 20160305
  Serious: Yes (Death)
  Sender: FDA-Public Use
  Company Number: US-ORIENT PHARMA CO., LTD.-2015ORT00003

PATIENT
  Age: 43 Year
  Sex: Female

DRUGS (2)
  1. CARISOPRODOL. [Suspect]
     Active Substance: CARISOPRODOL
     Dosage: UNK
     Route: 065
  2. HEROIN [Suspect]
     Active Substance: DIACETYLMORPHINE
     Route: 065

REACTIONS (6)
  - Tachycardia [Fatal]
  - Coma [Fatal]
  - Anion gap abnormal [Fatal]
  - Hypotension [Fatal]
  - Metabolic acidosis [Fatal]
  - Depressed level of consciousness [None]
